FAERS Safety Report 9528797 (Version 1)
Quarter: 2013Q1

REPORT INFORMATION
  Report Type: Spontaneous
  Country: US (occurrence: None)
  Receive Date: 20130322
  Receipt Date: 20130322
  Transmission Date: 20140127
  Serious: Yes (Other)
  Sender: FDA-Public Use
  Company Number: 1-0712-26

PATIENT
  Sex: Male

DRUGS (1)
  1. DERMA-SMOOTHE/FS [Suspect]
     Dosage: TOPICAL
     Route: 061

REACTIONS (1)
  - Skin discolouration [None]
